FAERS Safety Report 18086672 (Version 1)
Quarter: 2020Q3

REPORT INFORMATION
  Report Type: Spontaneous
  Country: US (occurrence: US)
  Receive Date: 20200728
  Receipt Date: 20200728
  Transmission Date: 20201103
  Serious: Yes (Disabling)
  Sender: FDA-Public Use
  Company Number: None

PATIENT
  Age: 62 Year
  Sex: Female
  Weight: 76.5 kg

DRUGS (1)
  1. NP THYROID [Suspect]
     Active Substance: LEVOTHYROXINE\LIOTHYRONINE
     Indication: HYPOTHYROIDISM
     Dosage: ?          QUANTITY:1 TABLET(S);?
     Route: 048
     Dates: start: 20190202, end: 20200710

REACTIONS (12)
  - Fatigue [None]
  - Temperature intolerance [None]
  - Product substitution issue [None]
  - Product odour abnormal [None]
  - Recalled product administered [None]
  - Hypertension [None]
  - Chest pain [None]
  - Product measured potency issue [None]
  - Hyperthyroidism [None]
  - Muscular weakness [None]
  - Dyspnoea [None]
  - Blood thyroid stimulating hormone abnormal [None]

NARRATIVE: CASE EVENT DATE: 20200410
